FAERS Safety Report 5816504-0 (Version None)
Quarter: 2008Q3

REPORT INFORMATION
  Report Type: 
  Country: None (occurrence: None)
  Receive Date: 20080717
  Receipt Date: 20080717
  Transmission Date: 20090109
  Serious: Yes (Hospitalization)
  Sender: FDA-Public Use
  Company Number: None

PATIENT
  Age: 35 Year
  Sex: Female

DRUGS (1)
  1. CIPRO [Suspect]
     Indication: ARTHRITIS BACTERIAL
     Dosage: 500 MG BID PO, APPROX. 1 1/2 WKS
     Route: 048

REACTIONS (6)
  - ARTHRALGIA [None]
  - CHILLS [None]
  - HYPERHIDROSIS [None]
  - LYMPHADENOPATHY [None]
  - PYREXIA [None]
  - SERUM SICKNESS [None]
